FAERS Safety Report 23436506 (Version 1)
Quarter: 2024Q1

REPORT INFORMATION
  Report Type: Spontaneous
  Country: US (occurrence: US)
  Receive Date: 20240124
  Receipt Date: 20240124
  Transmission Date: 20240410
  Serious: Yes (Hospitalization)
  Sender: FDA-Public Use
  Company Number: US-SANDOZ-SDZ2024US005655

PATIENT
  Age: 61 Year
  Sex: Male

DRUGS (2)
  1. ENTRESTO [Suspect]
     Active Substance: SACUBITRIL\VALSARTAN
     Indication: Cardiac failure
     Dosage: UNK
     Route: 065
     Dates: start: 20231023
  2. LISINOPRIL [Suspect]
     Active Substance: LISINOPRIL
     Indication: Product used for unknown indication
     Dosage: UNK
     Route: 065

REACTIONS (7)
  - Pleural effusion [Recovered/Resolved]
  - Bronchitis [Recovered/Resolved]
  - Ejection fraction decreased [Unknown]
  - Dyspnoea [Unknown]
  - Weight decreased [Recovering/Resolving]
  - Sleep apnoea syndrome [Unknown]
  - Cough [Unknown]

NARRATIVE: CASE EVENT DATE: 20231001
